FAERS Safety Report 24275784 (Version 1)
Quarter: 2024Q3

REPORT INFORMATION
  Report Type: Spontaneous
  Country: EG (occurrence: EG)
  Receive Date: 20240903
  Receipt Date: 20240903
  Transmission Date: 20241017
  Serious: Yes (Death, Life-Threatening, Other)
  Sender: SANDOZ
  Company Number: EG-SANDOZ-SDZ2024EG076927

PATIENT
  Age: 5 Year
  Sex: Male

DRUGS (2)
  1. CEFTRIAXONE [Suspect]
     Active Substance: CEFTRIAXONE\CEFTRIAXONE SODIUM
     Indication: Product used for unknown indication
     Dosage: 1000 MG
     Route: 042
     Dates: start: 20240825
  2. PERFALGAN [Concomitant]
     Active Substance: ACETAMINOPHEN
     Indication: Product used for unknown indication
     Dosage: UNK
     Route: 042
     Dates: start: 20240825

REACTIONS (3)
  - Cardiac arrest [Fatal]
  - Anaphylactic shock [Not Recovered/Not Resolved]
  - Injection site erythema [Unknown]

NARRATIVE: CASE EVENT DATE: 20240825
